FAERS Safety Report 5470932-4 (Version None)
Quarter: 2007Q3

REPORT INFORMATION
  Report Type: 
  Country: None (occurrence: None)
  Receive Date: 20070928
  Receipt Date: 20070926
  Transmission Date: 20080115
  Serious: Yes (Hospitalization, Congenital Anomaly)
  Sender: FDA-Public Use
  Company Number: FR-MERCK-0709FRA00068

PATIENT
  Age: 29 Year
  Sex: Female

DRUGS (2)
  1. ALDOMET [Suspect]
     Indication: ESSENTIAL HYPERTENSION
     Route: 048
     Dates: start: 20060501, end: 20061101
  2. ALDOMET [Suspect]
     Route: 048
     Dates: start: 20061101, end: 20070301

REACTIONS (3)
  - APLASIA CUTIS CONGENITA [None]
  - DRUG EXPOSURE DURING PREGNANCY [None]
  - ECLAMPSIA [None]
